FAERS Safety Report 13330958 (Version 1)
Quarter: 2017Q1

REPORT INFORMATION
  Report Type: Spontaneous
  Country: US (occurrence: US)
  Receive Date: 20170314
  Receipt Date: 20170314
  Transmission Date: 20170428
  Serious: Yes (Hospitalization)
  Sender: FDA-Public Use
  Company Number: US-ACCORD-049029

PATIENT
  Age: 38 Year
  Sex: Female

DRUGS (1)
  1. MITOMYCIN. [Suspect]
     Active Substance: MITOMYCIN
     Indication: APPENDIX CANCER
     Dosage: WITH 41 DEGREE C  FOR 90 MIN,?FIXED DOSE,?30 MG AT 0 MIN, 10 MG AT 60 MIN
     Route: 033

REACTIONS (3)
  - Acute respiratory distress syndrome [Recovered/Resolved]
  - Toxicity to various agents [Unknown]
  - Off label use [Unknown]
